FAERS Safety Report 13768306 (Version 1)
Quarter: 2017Q3

REPORT INFORMATION
  Report Type: Spontaneous
  Country: FR (occurrence: FR)
  Receive Date: 20170719
  Receipt Date: 20170719
  Transmission Date: 20171127
  Serious: Yes (Hospitalization)
  Sender: FDA-Public Use
  Company Number: FR-PFIZER INC-2017306556

PATIENT
  Age: 45 Year
  Sex: Male

DRUGS (8)
  1. INLYTA [Suspect]
     Active Substance: AXITINIB
     Dosage: 7 MG, 2X/DAY
     Route: 048
     Dates: start: 20170526, end: 20170607
  2. OXYCODONE [Concomitant]
     Active Substance: OXYCODONE
     Dosage: UNK
  3. INLYTA [Suspect]
     Active Substance: AXITINIB
     Dosage: 10 MG, 2X/DAY
     Route: 048
     Dates: start: 20170608, end: 201706
  4. KETOPROFEN. [Concomitant]
     Active Substance: KETOPROFEN
     Dosage: UNK
  5. PARACETAMOL [Concomitant]
     Active Substance: ACETAMINOPHEN
     Dosage: UNK
  6. INLYTA [Suspect]
     Active Substance: AXITINIB
     Indication: METASTATIC RENAL CELL CARCINOMA
     Dosage: 5 MG, 2X/DAY
     Route: 048
     Dates: start: 20170510, end: 20170525
  7. INLYTA [Suspect]
     Active Substance: AXITINIB
     Dosage: 7 MG, 2X/DAY
     Route: 048
     Dates: start: 201706, end: 20170623
  8. LOVENOX [Concomitant]
     Active Substance: ENOXAPARIN SODIUM
     Dosage: 4000 IU, DAILY

REACTIONS (4)
  - Prothrombin time shortened [Unknown]
  - Back pain [Unknown]
  - Diarrhoea [Recovered/Resolved]
  - Neoplasm progression [Unknown]

NARRATIVE: CASE EVENT DATE: 2017
